FAERS Safety Report 8797810 (Version 2)
Quarter: 2013Q1

REPORT INFORMATION
  Report Type: Spontaneous
  Country: US (occurrence: US)
  Receive Date: 20120920
  Receipt Date: 20130123
  Transmission Date: 20140127
  Serious: No
  Sender: FDA-Public Use
  Company Number: US-009507513-1208USA010972

PATIENT
  Sex: Female

DRUGS (3)
  1. INTRONA [Suspect]
     Indication: T-CELL LYMPHOMA
     Dosage: UNK, TIW
  2. OXSORALEN [Concomitant]
  3. [THERAPY UNSPECIFIED] [Concomitant]

REACTIONS (1)
  - Pigmentation disorder [Not Recovered/Not Resolved]
